FAERS Safety Report 9665505 (Version 1)
Quarter: 2013Q4

REPORT INFORMATION
  Report Type: Spontaneous
  Country: US (occurrence: None)
  Receive Date: 20131101
  Receipt Date: 20131101
  Transmission Date: 20140711
  Serious: Yes (Disabling)
  Sender: FDA-Public Use
  Company Number: None

PATIENT
  Age: 81 Year
  Sex: Male
  Weight: 106.6 kg

DRUGS (1)
  1. LEVOFLOXACIN [Suspect]
     Indication: DYSPNOEA
     Dosage: INTO A VEIN
     Dates: start: 20130524, end: 20130528

REACTIONS (2)
  - Myalgia [None]
  - Tendon disorder [None]
